FAERS Safety Report 18001380 (Version 3)
Quarter: 2020Q4

REPORT INFORMATION
  Report Type: Report from Study
  Country: AU (occurrence: AU)
  Receive Date: 20200709
  Receipt Date: 20201226
  Transmission Date: 20210113
  Serious: Yes (Other)
  Sender: FDA-Public Use
  Company Number: AU-UCBSA-2020024528

PATIENT
  Age: 32 Year
  Sex: Female

DRUGS (3)
  1. CERTOLIZUMAB PEGOL AUTOCLICKS [Suspect]
     Active Substance: CERTOLIZUMAB PEGOL
     Dosage: 200 MILLIGRAM, EV 2 WEEKS(QOW)
     Route: 058
     Dates: start: 2020, end: 20200902
  2. CERTOLIZUMAB PEGOL AUTOCLICKS [Suspect]
     Active Substance: CERTOLIZUMAB PEGOL
     Dosage: 200 MILLIGRAM, EV 2 WEEKS(QOW)
     Route: 058
     Dates: start: 2020, end: 2020
  3. CERTOLIZUMAB PEGOL AUTOCLICKS [Suspect]
     Active Substance: CERTOLIZUMAB PEGOL
     Indication: RHEUMATOID ARTHRITIS
     Dosage: 400 MILLIGRAM, EV 2 WEEKS(QOW)
     Route: 058
     Dates: start: 20200610, end: 2020

REACTIONS (8)
  - Maternal exposure during pregnancy [Unknown]
  - Maternal exposure during breast feeding [Unknown]
  - Nodule [Not Recovered/Not Resolved]
  - Protein urine present [Not Recovered/Not Resolved]
  - Injection site urticaria [Recovered/Resolved]
  - Injection site erythema [Not Recovered/Not Resolved]
  - Nasopharyngitis [Not Recovered/Not Resolved]
  - Therapeutic response shortened [Unknown]

NARRATIVE: CASE EVENT DATE: 2020
